FAERS Safety Report 13402634 (Version 2)
Quarter: 2017Q2

REPORT INFORMATION
  Report Type: Report from Study
  Country: MX (occurrence: MX)
  Receive Date: 20170404
  Receipt Date: 20170413
  Transmission Date: 20170830
  Serious: Yes (Hospitalization, Other)
  Sender: FDA-Public Use
  Company Number: MX-ACTELION-A-NJ2017-152039

PATIENT
  Age: 18 Year
  Sex: Female

DRUGS (8)
  1. VENTAVIS [Suspect]
     Active Substance: ILOPROST
     Indication: PULMONARY ARTERIAL HYPERTENSION
     Dosage: 1 DF, Q8HRS
     Route: 055
     Dates: start: 20170324
  2. BOSENTAN. [Concomitant]
     Active Substance: BOSENTAN
     Indication: PULMONARY ARTERIAL HYPERTENSION
     Dosage: UNK
     Route: 048
     Dates: start: 2016
  3. VITAMINS [Concomitant]
     Active Substance: VITAMINS
  4. FUROSEMIDE. [Concomitant]
     Active Substance: FUROSEMIDE
     Dosage: UNK
     Dates: start: 2009
  5. SPIRONOLACTONE. [Concomitant]
     Active Substance: SPIRONOLACTONE
     Dosage: UNK
     Dates: start: 2013
  6. OXYGEN. [Concomitant]
     Active Substance: OXYGEN
     Dosage: UNK
     Dates: start: 201704
  7. DIURETICS [Concomitant]
     Active Substance: UNSPECIFIED INGREDIENT
  8. SILDENAFIL. [Concomitant]
     Active Substance: SILDENAFIL
     Dosage: UNK
     Dates: start: 2009

REACTIONS (6)
  - Dry throat [Recovered/Resolved]
  - Depressed level of consciousness [Recovered/Resolved]
  - Dehydration [Not Recovered/Not Resolved]
  - Cough [Recovered/Resolved]
  - Vomiting [Not Recovered/Not Resolved]
  - Product use issue [Unknown]

NARRATIVE: CASE EVENT DATE: 20170324
